FAERS Safety Report 24685846 (Version 1)
Quarter: 2024Q4

REPORT INFORMATION
  Report Type: Spontaneous
  Country: ES (occurrence: ES)
  Receive Date: 20241202
  Receipt Date: 20241202
  Transmission Date: 20250115
  Serious: Yes (Other)
  Sender: FRESENIUS KABI
  Company Number: None

PATIENT
  Age: 75 Year
  Sex: Female

DRUGS (10)
  1. OXALIPLATIN [Suspect]
     Active Substance: OXALIPLATIN
     Indication: Adenocarcinoma of colon
     Dates: start: 20240927
  2. CAPECITABINE [Suspect]
     Active Substance: CAPECITABINE
     Indication: Adenocarcinoma of colon
     Route: 042
     Dates: start: 20240927
  3. EUTIROX 75 micrograms tablets, 100 tablets [Concomitant]
     Indication: Product used for unknown indication
     Route: 048
     Dates: start: 20141125
  4. PREGABALIN CINFA 150 MG HARD CAPSULES EFG , 56 capsules [Concomitant]
     Indication: Product used for unknown indication
     Dosage: FOA: CAPSULE, HARD
     Route: 048
     Dates: start: 20230330
  5. LORAZEPAM NORMON 1 MG tablets EFG, 50 tablets [Concomitant]
     Indication: Product used for unknown indication
     Route: 048
     Dates: start: 20120316
  6. DUMIROX 50 mg FILM COATED tablets, 30 tablets [Concomitant]
     Indication: Product used for unknown indication
     Dosage: FOA: FILM COATED TABLET
     Route: 048
     Dates: start: 20120316
  7. HYDROPHEROL 0.266 mg ORAL SOLUTION , 10 drinkable ampoules of 1.5 ml [Concomitant]
     Indication: Product used for unknown indication
     Dosage: FOA: ORAL EMULSION
     Route: 048
     Dates: start: 20220302
  8. OMEPRAZOL CINFAMED 20 mg HARD CAPSULES GASTRORESISTENT EFG , 28 capsul [Concomitant]
     Indication: Product used for unknown indication
     Dosage: FOA: GASTRO RESISTANT CAPSULE HARD
     Route: 048
     Dates: start: 20170410
  9. CRESTOR 10 mg FILM COATED tablets, 28 tablets [Concomitant]
     Indication: Product used for unknown indication
     Dosage: FOA: FILM COATED TABLET
     Route: 048
     Dates: start: 20120316
  10. FORTECORTIN 4 mg tablets, 30 tablets [Concomitant]
     Indication: Product used for unknown indication
     Route: 048
     Dates: start: 20240927

REACTIONS (1)
  - Blood thyroid stimulating hormone increased [Unknown]

NARRATIVE: CASE EVENT DATE: 20241017
